FAERS Safety Report 22946059 (Version 4)
Quarter: 2023Q4

REPORT INFORMATION
  Report Type: Report from Study
  Country: ES (occurrence: ES)
  Receive Date: 20230915
  Receipt Date: 20231016
  Transmission Date: 20240110
  Serious: Yes (Hospitalization, Other)
  Sender: FDA-Public Use
  Company Number: ES-ABBVIE-5391154

PATIENT
  Sex: Male

DRUGS (3)
  1. CARBIDOPA\LEVODOPA [Suspect]
     Active Substance: CARBIDOPA\LEVODOPA
     Indication: Parkinson^s disease
     Route: 050
     Dates: start: 20220505, end: 202309
  2. CARBIDOPA\LEVODOPA [Suspect]
     Active Substance: CARBIDOPA\LEVODOPA
     Dosage: LAST ADMIN DATE-2023
     Route: 050
     Dates: start: 202309
  3. CARBIDOPA\LEVODOPA [Suspect]
     Active Substance: CARBIDOPA\LEVODOPA
     Dosage: MORNING DOSE 8, CONTINUOUS DOSES 3, EXTRA DOSES 6.5
     Route: 050
     Dates: start: 202309, end: 20230912

REACTIONS (16)
  - Drug abuse [Unknown]
  - Agitation [Unknown]
  - Condition aggravated [Unknown]
  - Hallucination [Recovering/Resolving]
  - Pain in extremity [Recovered/Resolved]
  - Confusional state [Unknown]
  - Device issue [Unknown]
  - Therapeutic product effect incomplete [Unknown]
  - Speech disorder [Unknown]
  - Fall [Unknown]
  - Neuropsychological symptoms [Unknown]
  - Tremor [Recovered/Resolved]
  - Paraesthesia [Recovered/Resolved]
  - Device issue [Unknown]
  - Pyrexia [Recovered/Resolved]
  - Cognitive disorder [Unknown]

NARRATIVE: CASE EVENT DATE: 20230101
